FAERS Safety Report 5375939-3 (Version None)
Quarter: 2007Q2

REPORT INFORMATION
  Report Type: 
  Country: None (occurrence: None)
  Receive Date: 20070627
  Receipt Date: 20070627
  Transmission Date: 20071010
  Serious: Yes (Hospitalization)
  Sender: FDA-Public Use
  Company Number: None

PATIENT
  Age: 77 Year
  Sex: Male
  Weight: 70.7 kg

DRUGS (1)
  1. LOTENSIN [Suspect]
     Indication: HYPERTENSION
     Dosage: 10MG TABLET DAILY PO
     Route: 048

REACTIONS (3)
  - ANGIOEDEMA [None]
  - OEDEMA MOUTH [None]
  - SWOLLEN TONGUE [None]
